FAERS Safety Report 8880287 (Version 1)
Quarter: 2012Q4

REPORT INFORMATION
  Report Type: 
  Country: NL (occurrence: NL)
  Receive Date: 20121031
  Receipt Date: 20121031
  Transmission Date: 20130627
  Serious: Yes (Other)
  Sender: FDA-Public Use
  Company Number: PHHY2012NL097617

PATIENT
  Age: 27 Year
  Sex: Female

DRUGS (3)
  1. OMEPRAZOLE [Suspect]
     Indication: ABDOMINAL PAIN UPPER
  2. METHOTREXATE [Concomitant]
     Indication: PSORIASIS
     Dosage: 15 mg, QW
  3. DESOXIMETASONE [Concomitant]

REACTIONS (4)
  - Drug eruption [Recovered/Resolved]
  - Pruritus [Recovered/Resolved]
  - Erythema [Recovered/Resolved]
  - Rash pustular [Recovered/Resolved]
